FAERS Safety Report 6093640-8 (Version None)
Quarter: 2009Q1

REPORT INFORMATION
  Report Type: 
  Country: None (occurrence: None)
  Receive Date: 20090226
  Receipt Date: 20090216
  Transmission Date: 20090719
  Serious: Yes (Hospitalization)
  Sender: FDA-Public Use
  Company Number: AU-WATSON-2009-01163

PATIENT
  Age: 82 Year
  Sex: Male

DRUGS (3)
  1. SULFAMETHOXAZOLE/TRIMETHOPRIM 800/160 (WATSON LABORATORIES) [Suspect]
     Indication: PNEUMONIA
     Dosage: 1 TABLET, Q12H (800MG/160MG)
     Route: 048
  2. SULFAMETHOXAZOLE/TRIMETHOPRIM 800/160 (WATSON LABORATORIES) [Suspect]
     Dosage: 2 TABLET, 800/160MG, BID
     Route: 048
  3. VENLAFAXINE HCL [Suspect]
     Indication: DRUG USE FOR UNKNOWN INDICATION

REACTIONS (3)
  - DELIRIUM [None]
  - DRUG INTERACTION [None]
  - GAIT DISTURBANCE [None]
